FAERS Safety Report 9121532 (Version 1)
Quarter: 2013Q1

REPORT INFORMATION
  Report Type: Spontaneous
  Country: US (occurrence: US)
  Receive Date: 20130102
  Receipt Date: 20130102
  Transmission Date: 20140127
  Serious: Yes (Other)
  Sender: FDA-Public Use
  Company Number: US-RB-045388-12

PATIENT
  Age: 37 None
  Sex: Female

DRUGS (3)
  1. BUPRENORPHINE [Suspect]
     Route: 065
  2. BUPRENORPHINE [Suspect]
     Indication: DRUG DEPENDENCE
     Route: 065
     Dates: start: 201002, end: 201106
  3. BUPRENORPHINE [Suspect]
     Dosage: TAPERED DOWN TO 0 MG IN FIRST TRIMESTER
     Route: 065

REACTIONS (3)
  - HELLP syndrome [Recovered/Resolved]
  - Premature delivery [Recovered/Resolved]
  - Exposure during pregnancy [Recovered/Resolved]
